FAERS Safety Report 8806818 (Version 2)
Quarter: 2012Q4

REPORT INFORMATION
  Report Type: 
  Country: DE (occurrence: DE)
  Receive Date: 20120925
  Receipt Date: 20121107
  Transmission Date: 20130627
  Serious: Yes (Other)
  Sender: FDA-Public Use
  Company Number: DE-ELI_LILLY_AND_COMPANY-DE201209003781

PATIENT
  Age: 8 Year
  Sex: Male
  Weight: 22.5 kg

DRUGS (1)
  1. STRATTERA [Suspect]
     Indication: ATTENTION DEFICIT/HYPERACTIVITY DISORDER
     Dosage: 25 mg, UNK
     Route: 048
     Dates: start: 201207, end: 20120911

REACTIONS (5)
  - Electrocardiogram QT prolonged [Recovering/Resolving]
  - Congenital coronary artery malformation [Recovering/Resolving]
  - Tachycardia [Recovering/Resolving]
  - Blood pressure increased [Recovering/Resolving]
  - Decreased activity [Recovering/Resolving]
